FAERS Safety Report 16858050 (Version 1)
Quarter: 2019Q3

REPORT INFORMATION
  Report Type: Spontaneous
  Country: DE (occurrence: DE)
  Receive Date: 20190926
  Receipt Date: 20190926
  Transmission Date: 20191005
  Serious: Yes (Other)
  Sender: FDA-Public Use
  Company Number: DE-JNJFOC-20190220271

PATIENT

DRUGS (3)
  1. CAELYX [Suspect]
     Active Substance: DOXORUBICIN HYDROCHLORIDE
     Indication: OVARIAN CANCER
     Dosage: 4 CYCLES AT 4-WEEK INTERVALS
     Route: 013
  2. CISPLATIN. [Suspect]
     Active Substance: CISPLATIN
     Indication: OVARIAN CANCER
     Dosage: 4 CYCLES AT 4-WEEK INTERVALS
     Route: 013
  3. MITOMYCIN. [Suspect]
     Active Substance: MITOMYCIN
     Indication: OVARIAN CANCER
     Dosage: 4 CYCLES AT 4-WEEK INTERVALS
     Route: 013

REACTIONS (6)
  - Incorrect route of product administration [Unknown]
  - Thrombocytopenia [Unknown]
  - Bone marrow failure [Unknown]
  - Off label use [Unknown]
  - Nephropathy toxic [Unknown]
  - Leukopenia [Unknown]
